FAERS Safety Report 6444113-1 (Version None)
Quarter: 2009Q4

REPORT INFORMATION
  Report Type: 
  Country: None (occurrence: None)
  Receive Date: 20091118
  Receipt Date: 20091116
  Transmission Date: 20100525
  Serious: Yes (Hospitalization)
  Sender: FDA-Public Use
  Company Number: DE-WYE-G04794309

PATIENT
  Sex: Female

DRUGS (2)
  1. VENLAFAXINE HCL [Suspect]
     Dosage: THERAPEUTIC DOSE REGIMEN UNKNOWN; UNKNOWN AMOUNT WITH ABUSIVE INTENT ON 03-NOV-2009
     Route: 048
  2. VALPROATE SODIUM [Suspect]
     Dosage: THERAPEUTIC DOSE REGIMEN UNKNOWN; UNKNOWN AMOUNT WITH ABUSIVE INTENT ON 03-NOV-2009
     Route: 048

REACTIONS (3)
  - DRUG ABUSE [None]
  - MYDRIASIS [None]
  - STUPOR [None]
